FAERS Safety Report 7420509-6 (Version None)
Quarter: 2011Q2

REPORT INFORMATION
  Report Type: 
  Country: None (occurrence: None)
  Receive Date: 20110418
  Receipt Date: 20110413
  Transmission Date: 20111010
  Serious: No
  Sender: FDA-Public Use
  Company Number: US-PFIZER INC-2011081416

PATIENT
  Sex: Male

DRUGS (2)
  1. LORAZEPAM [Suspect]
     Dosage: 1 MG, UNK
  2. SERTRALINE HYDROCHLORIDE [Suspect]
     Dosage: 50 MG, UNK

REACTIONS (1)
  - DRY MOUTH [None]
